FAERS Safety Report 8773122 (Version 1)
Quarter: 2012Q4

REPORT INFORMATION
  Report Type: 
  Country: ES (occurrence: ES)
  Receive Date: 20120907
  Receipt Date: 20120907
  Transmission Date: 20130627
  Serious: Yes (Hospitalization)
  Sender: FDA-Public Use
  Company Number: PHHY2011ES02009

PATIENT
  Age: 84 Year
  Sex: Female

DRUGS (7)
  1. LEVOFLOXACIN [Suspect]
     Indication: RESPIRATORY TRACT INFECTION
     Dosage: 500 mg, QD
  2. SULFADIAZINE SILVER [Concomitant]
  3. VASELINE [Concomitant]
  4. CORTICOSTEROIDS [Concomitant]
  5. INSULIN [Concomitant]
  6. ANTIHISTAMINES [Concomitant]
  7. ANTIBIOTICS [Concomitant]

REACTIONS (9)
  - Stevens-Johnson syndrome [Recovered/Resolved]
  - Blister [Recovered/Resolved]
  - Odynophagia [Recovered/Resolved]
  - Renal impairment [Unknown]
  - Haematoma [Unknown]
  - Drug intolerance [Unknown]
  - Fall [Unknown]
  - Pyrexia [Recovered/Resolved]
  - Anaemia [Recovered/Resolved]
